FAERS Safety Report 10759771 (Version 2)
Quarter: 2015Q2

REPORT INFORMATION
  Report Type: Report from Study
  Country: ES (occurrence: ES)
  Receive Date: 20150203
  Receipt Date: 20150624
  Transmission Date: 20150821
  Serious: Yes (Hospitalization, Other)
  Sender: FDA-Public Use
  Company Number: ES-GILEAD-2014-0126048

PATIENT
  Age: 66 Year
  Sex: Female
  Weight: 69 kg

DRUGS (24)
  1. RITUXIMAB [Suspect]
     Active Substance: RITUXIMAB
     Dosage: 873 MG, UNK
     Route: 042
     Dates: start: 20150305, end: 20150305
  2. GEMFIBROZILO [Concomitant]
     Route: 048
     Dates: start: 2013
  3. BENDAMUSTINE [Suspect]
     Active Substance: BENDAMUSTINE
     Dosage: 157 MG, QD
     Route: 042
     Dates: start: 20150305, end: 20150306
  4. GRANISETRON [Concomitant]
     Active Substance: GRANISETRON
     Route: 042
     Dates: start: 20141120
  5. RITUXIMAB [Suspect]
     Active Substance: RITUXIMAB
     Dosage: 873 MG, QD
     Route: 042
     Dates: start: 20150122, end: 20150122
  6. OMEPRAZO [Concomitant]
     Dosage: UNK
     Route: 048
  7. POLARAMINE [Concomitant]
     Active Substance: DEXCHLORPHENIRAMINE MALEATE
     Route: 030
     Dates: start: 20141201, end: 20141201
  8. BENDAMUSTINE [Suspect]
     Active Substance: BENDAMUSTINE
     Dosage: 157 MG, QD
     Route: 042
     Dates: start: 20150122, end: 20150122
  9. HIDROSALURETIL [Concomitant]
     Active Substance: HYDROCHLOROTHIAZIDE
     Indication: HYPERTENSION
     Dosage: UNK
     Route: 048
  10. ALOPURINOL [Concomitant]
     Active Substance: ALLOPURINOL
     Route: 048
     Dates: start: 20141120, end: 20141127
  11. URBASON                            /00049601/ [Concomitant]
     Active Substance: METHYLPREDNISOLONE
     Route: 030
     Dates: start: 20141201, end: 20141201
  12. FUCIBET CREAM [Concomitant]
     Active Substance: BETAMETHASONE\FUSIDIC ACID
     Route: 061
     Dates: start: 20141104, end: 20141120
  13. PARACETAMOL [Concomitant]
     Active Substance: ACETAMINOPHEN
     Route: 042
     Dates: start: 20141120
  14. DEXCLORFENIRAMINE [Concomitant]
     Route: 042
     Dates: start: 20141120
  15. IBOPROFENO [Concomitant]
     Route: 048
     Dates: start: 20141104
  16. IDELALISIB [Suspect]
     Active Substance: IDELALISIB
     Indication: CHRONIC LYMPHOCYTIC LEUKAEMIA
     Dosage: 150 MG, BID
     Route: 048
     Dates: start: 20141120, end: 20141201
  17. IDELALISIB [Suspect]
     Active Substance: IDELALISIB
     Dosage: 150 MG, BID
     Route: 048
     Dates: start: 20150122, end: 20150123
  18. BENDAMUSTINE [Suspect]
     Active Substance: BENDAMUSTINE
     Indication: CHRONIC LYMPHOCYTIC LEUKAEMIA
     Dosage: 157 MG, QD
     Route: 042
     Dates: start: 20141120, end: 20141121
  19. ALPRAZOLAM. [Concomitant]
     Active Substance: ALPRAZOLAM
     Dosage: UNK
     Route: 048
     Dates: start: 201306
  20. BETAHISTINE [Concomitant]
     Active Substance: BETAHISTINE
     Route: 048
  21. RITUXIMAB [Suspect]
     Active Substance: RITUXIMAB
     Indication: CHRONIC LYMPHOCYTIC LEUKAEMIA
     Dosage: 873 MG, QD
     Route: 042
     Dates: start: 20141120, end: 20141120
  22. METFORMINA                         /00082702/ [Concomitant]
     Route: 048
     Dates: start: 201407
  23. RUPAFIN [Concomitant]
     Active Substance: RUPATADINE FUMARATE
     Route: 048
     Dates: start: 20141104, end: 20141120
  24. EMCONCOR [Concomitant]
     Active Substance: BISOPROLOL FUMARATE
     Dosage: UNK
     Route: 048
     Dates: start: 2011

REACTIONS (1)
  - Myocarditis infectious [Recovered/Resolved]

NARRATIVE: CASE EVENT DATE: 20141202
